FAERS Safety Report 9943553 (Version 1)
Quarter: 2014Q1

REPORT INFORMATION
  Report Type: Report from Study
  Country: US (occurrence: US)
  Receive Date: 20140303
  Receipt Date: 20140303
  Transmission Date: 20141002
  Serious: No
  Sender: FDA-Public Use
  Company Number: US-ABBVIE-13P-163-1048286-00

PATIENT
  Sex: Male
  Weight: 74.91 kg

DRUGS (17)
  1. HUMIRA [Suspect]
     Indication: CROHN^S DISEASE
     Dates: start: 2003, end: 2005
  2. CIMZIA [Suspect]
     Indication: CROHN^S DISEASE
  3. PREDNISONE [Concomitant]
     Indication: CROHN^S DISEASE
     Dates: start: 1998
  4. LOMOTIL [Concomitant]
     Indication: SHORT-BOWEL SYNDROME
  5. CODEINE SULFATE [Concomitant]
     Indication: SHORT-BOWEL SYNDROME
  6. HYDROCODONE [Concomitant]
     Indication: SPINAL COLUMN STENOSIS
     Dosage: 7.5 MG/500 MG
     Dates: start: 2003
  7. VITAMIN B12 [Concomitant]
     Indication: VITAMIN SUPPLEMENTATION
  8. POTASSIUM CITRATE [Concomitant]
     Indication: DEHYDRATION
  9. POTASSIUM CITRATE [Concomitant]
     Indication: NEPHROLITHIASIS
  10. POTASSIUM CITRATE [Concomitant]
     Indication: URINARY TRACT INFECTION
  11. MAGNESIUM OXIDE [Concomitant]
     Indication: MINERAL SUPPLEMENTATION
  12. HUMALOG [Concomitant]
     Indication: TYPE 2 DIABETES MELLITUS
  13. CALCIUM [Concomitant]
     Indication: MINERAL SUPPLEMENTATION
  14. VITAMIN D [Concomitant]
     Indication: VITAMIN SUPPLEMENTATION
  15. UNNAMED CREAM MEDICATION [Concomitant]
     Indication: HYPERKERATOSIS
     Route: 061
  16. AVASTIN [Concomitant]
     Indication: CHOROIDAL DYSTROPHY
  17. LANTUS [Concomitant]
     Indication: TYPE 2 DIABETES MELLITUS

REACTIONS (5)
  - Ileus [Recovered/Resolved]
  - Upper respiratory tract infection [Recovered/Resolved]
  - Respiratory tract congestion [Recovered/Resolved]
  - Sinusitis [Recovered/Resolved]
  - Drug ineffective [Not Recovered/Not Resolved]
